FAERS Safety Report 8682734 (Version 10)
Quarter: 2014Q2

REPORT INFORMATION
  Report Type: Report from Study
  Country: AR (occurrence: AR)
  Receive Date: 20120725
  Receipt Date: 20140611
  Transmission Date: 20141212
  Serious: Yes (Hospitalization, Other)
  Sender: FDA-Public Use
  Company Number: PHHY2012AR063097

PATIENT
  Age: 39 Year
  Sex: Female

DRUGS (3)
  1. GILENYA [Suspect]
     Indication: MULTIPLE SCLEROSIS
     Dosage: 1 DF, QD
     Route: 048
     Dates: start: 201010, end: 20140529
  2. GILENYA [Suspect]
     Dosage: 1 DF, QD
     Route: 048
  3. VALCOTE [Concomitant]
     Indication: EPILEPSY

REACTIONS (12)
  - Limb discomfort [Recovering/Resolving]
  - Swelling [Recovering/Resolving]
  - Poor peripheral circulation [Not Recovered/Not Resolved]
  - Peripheral swelling [Not Recovered/Not Resolved]
  - Gait disturbance [Recovering/Resolving]
  - Muscular weakness [Not Recovered/Not Resolved]
  - Convulsion [Recovering/Resolving]
  - Fall [Unknown]
  - Blood pressure decreased [Not Recovered/Not Resolved]
  - Pain in extremity [Not Recovered/Not Resolved]
  - Depression [Not Recovered/Not Resolved]
  - Histoplasmosis [Not Recovered/Not Resolved]
